FAERS Safety Report 7502762-3 (Version None)
Quarter: 2011Q2

REPORT INFORMATION
  Report Type: 
  Country: None (occurrence: None)
  Receive Date: 20110525
  Receipt Date: 20110519
  Transmission Date: 20111010
  Serious: Yes (Hospitalization)
  Sender: FDA-Public Use
  Company Number: GB-PFIZER INC-2011107592

PATIENT
  Age: 60 Year
  Sex: Male

DRUGS (1)
  1. INSPRA [Suspect]
     Dosage: 12.5 MG, UNK

REACTIONS (1)
  - FALL [None]
